FAERS Safety Report 14656142 (Version 1)
Quarter: 2018Q1

REPORT INFORMATION
  Report Type: Spontaneous
  Country: US (occurrence: US)
  Receive Date: 20180319
  Receipt Date: 20180319
  Transmission Date: 20180509
  Serious: Yes (Hospitalization)
  Sender: FDA-Public Use
  Company Number: US-TARO PHARMACEUTICALS USA.,INC-2018SUN00110

PATIENT
  Age: 66 Year
  Sex: Female

DRUGS (1)
  1. DAPSONE. [Suspect]
     Active Substance: DAPSONE
     Indication: PRODUCT USED FOR UNKNOWN INDICATION
     Dosage: UNK
     Route: 065

REACTIONS (10)
  - Fluid overload [Recovering/Resolving]
  - Cardiac tamponade [Recovering/Resolving]
  - Leukopenia [Recovering/Resolving]
  - Ascites [Recovering/Resolving]
  - Cardiac failure congestive [Recovering/Resolving]
  - Polyserositis [Recovered/Resolved]
  - Pericardial effusion [Recovering/Resolving]
  - Acute kidney injury [Recovering/Resolving]
  - Anaemia [Recovering/Resolving]
  - Pleural effusion [Recovering/Resolving]
